FAERS Safety Report 9082229 (Version 1)
Quarter: 2013Q1

REPORT INFORMATION
  Report Type: Spontaneous
  Country: DE (occurrence: DE)
  Receive Date: 20130130
  Receipt Date: 20130130
  Transmission Date: 20140127
  Serious: Yes (Other)
  Sender: FDA-Public Use
  Company Number: DE-ASTELLAS-2013EU000761

PATIENT
  Sex: Female

DRUGS (1)
  1. PROGRAF [Suspect]
     Dosage: UNK
     Route: 065

REACTIONS (1)
  - Myoglobin blood increased [Unknown]
